FAERS Safety Report 11882480 (Version 1)
Quarter: 2015Q4

REPORT INFORMATION
  Report Type: Report from Study
  Country: US (occurrence: US)
  Receive Date: 20151231
  Receipt Date: 20151231
  Transmission Date: 20160305
  Serious: Yes (Hospitalization, Other)
  Sender: FDA-Public Use
  Company Number: US-ABBVIE-15P-163-1530221-00

PATIENT
  Age: 40 Year
  Sex: Female

DRUGS (1)
  1. SYNTHROID [Suspect]
     Active Substance: LEVOTHYROXINE SODIUM
     Indication: HYPOTHYROIDISM
     Route: 048
     Dates: start: 1996

REACTIONS (34)
  - Fibula fracture [Unknown]
  - Vaginal infection [Recovered/Resolved]
  - Dysphagia [Not Recovered/Not Resolved]
  - Otitis media acute [Unknown]
  - Pelvic pain [Recovered/Resolved]
  - Groin pain [Recovered/Resolved]
  - Radial nerve injury [Recovered/Resolved]
  - Tibia fracture [Unknown]
  - Stress urinary incontinence [Unknown]
  - Menstrual disorder [Not Recovered/Not Resolved]
  - Menorrhagia [Not Recovered/Not Resolved]
  - Blood pressure increased [Unknown]
  - Post concussion syndrome [Not Recovered/Not Resolved]
  - Pain in extremity [Recovered/Resolved]
  - Amnesia [Not Recovered/Not Resolved]
  - Haemorrhoids [Not Recovered/Not Resolved]
  - Depression [Not Recovered/Not Resolved]
  - Small intestinal obstruction [Recovered/Resolved]
  - Vaginal discharge [Recovered/Resolved]
  - Hyperkalaemia [Unknown]
  - Uterine leiomyoma [Not Recovered/Not Resolved]
  - Psychological abuse [Unknown]
  - Femur fracture [Recovered/Resolved]
  - Radius fracture [Unknown]
  - Anxiety disorder [Not Recovered/Not Resolved]
  - Abdominal pain lower [Recovered/Resolved]
  - Arthralgia [Recovered/Resolved]
  - Dysuria [Recovered/Resolved]
  - Suicidal ideation [Unknown]
  - Attention deficit/hyperactivity disorder [Not Recovered/Not Resolved]
  - Bipolar disorder [Not Recovered/Not Resolved]
  - Constipation [Recovered/Resolved]
  - Otitis externa [Unknown]
  - Insomnia [Not Recovered/Not Resolved]

NARRATIVE: CASE EVENT DATE: 201207
